FAERS Safety Report 25749833 (Version 3)
Quarter: 2025Q4

REPORT INFORMATION
  Report Type: Report from Study
  Country: US (occurrence: US)
  Receive Date: 20250902
  Receipt Date: 20251125
  Transmission Date: 20260118
  Serious: Yes (Other)
  Sender: ACADIA PHARMACEUTICALS
  Company Number: US-ACADIA PHARMACEUTICALS INC.-ACA-2025-PIM-009659

PATIENT
  Age: 81 Year
  Sex: Female

DRUGS (8)
  1. NUPLAZID [Suspect]
     Active Substance: PIMAVANSERIN TARTRATE
     Indication: Product used for unknown indication
     Dosage: 34 MILLIGRAM, QD
     Route: 048
     Dates: start: 20240813
  2. NUPLAZID [Suspect]
     Active Substance: PIMAVANSERIN TARTRATE
     Indication: Product used for unknown indication
     Dosage: 10 MILLIGRAM, QD
     Route: 048
     Dates: start: 20250827, end: 202510
  3. ARICEPT [Concomitant]
     Active Substance: DONEPEZIL HYDROCHLORIDE
  4. MEMANTINE [Concomitant]
     Active Substance: MEMANTINE
  5. RIVASTIGMINE [Concomitant]
     Active Substance: RIVASTIGMINE
  6. FAMOTIDINE [Concomitant]
     Active Substance: FAMOTIDINE
  7. SYNTHROID [Concomitant]
     Active Substance: LEVOTHYROXINE SODIUM
  8. AVAPRO [Concomitant]
     Active Substance: IRBESARTAN

REACTIONS (3)
  - Hallucination [Not Recovered/Not Resolved]
  - Inflammation [Recovered/Resolved]
  - Prescribed underdose [Recovered/Resolved]

NARRATIVE: CASE EVENT DATE: 20250827
